FAERS Safety Report 5257359-5 (Version None)
Quarter: 2007Q1

REPORT INFORMATION
  Report Type: 
  Country: None (occurrence: None)
  Receive Date: 20070307
  Receipt Date: 20070220
  Transmission Date: 20070707
  Serious: Yes (Other)
  Sender: FDA-Public Use
  Company Number: CA-MERCK-0701CAN00054

PATIENT
  Age: 37 Year
  Sex: Female

DRUGS (1)
  1. COZAAR [Suspect]
     Indication: HYPERTENSION
     Route: 048
     Dates: start: 20051107

REACTIONS (3)
  - CORONARY ARTERY DISEASE [None]
  - DEPRESSION [None]
  - PANIC ATTACK [None]
